FAERS Safety Report 9263680 (Version 2)
Quarter: 2013Q2

REPORT INFORMATION
  Report Type: Report from Study
  Country: JP (occurrence: JP)
  Receive Date: 20130430
  Receipt Date: 20130503
  Transmission Date: 20140414
  Serious: Yes (Death)
  Sender: FDA-Public Use
  Company Number: JP-PFIZER INC-2013128418

PATIENT
  Age: 67 Year
  Sex: Male

DRUGS (2)
  1. CISPLATIN [Suspect]
     Indication: OESOPHAGEAL CARCINOMA
     Dosage: 40 MG/M2, ON DAYS 1 AND 8
     Route: 042
  2. FLUOROURACIL [Suspect]
     Indication: OESOPHAGEAL CARCINOMA
     Dosage: 400 MG/M2, ON DAYS 1-5 AND DAYS 8-12
     Route: 042

REACTIONS (2)
  - Oesophageal fistula [Fatal]
  - Ulcer [None]
